FAERS Safety Report 6264896-3 (Version None)
Quarter: 2009Q3

REPORT INFORMATION
  Report Type: 
  Country: None (occurrence: None)
  Receive Date: 20090713
  Receipt Date: 20090701
  Transmission Date: 20100115
  Serious: Yes (Hospitalization)
  Sender: FDA-Public Use
  Company Number: DE-BIOGENIDEC-2009BI020366

PATIENT
  Age: 49 Year
  Sex: Female
  Weight: 76 kg

DRUGS (3)
  1. TYSABRI [Suspect]
     Indication: MULTIPLE SCLEROSIS
     Route: 042
     Dates: start: 20070227
  2. GABAPENTIN [Concomitant]
     Indication: NEURALGIA
     Route: 048
  3. TILIDIN [Concomitant]
     Indication: NEURALGIA
     Route: 048

REACTIONS (1)
  - DIVERTICULITIS [None]
